FAERS Safety Report 17717126 (Version 2)
Quarter: 2020Q2

REPORT INFORMATION
  Report Type: Spontaneous
  Country: US (occurrence: US)
  Receive Date: 20200428
  Receipt Date: 20200506
  Transmission Date: 20200714
  Serious: No
  Sender: FDA-Public Use
  Company Number: US-HORIZON-BUP-0025-2020

PATIENT
  Age: 67 Year
  Sex: Female

DRUGS (12)
  1. LACTULOSE. [Concomitant]
     Active Substance: LACTULOSE
  2. CITRULLINE [Concomitant]
     Active Substance: CITRULLINE
  3. MODAFINIL. [Concomitant]
     Active Substance: MODAFINIL
  4. ASPIRIN. [Concomitant]
     Active Substance: ASPIRIN
  5. PRAVASTATIN. [Concomitant]
     Active Substance: PRAVASTATIN
  6. METOPROLOL. [Concomitant]
     Active Substance: METOPROLOL
  7. BUMETANIDE. [Concomitant]
     Active Substance: BUMETANIDE
  8. BUPHENYL [Suspect]
     Active Substance: SODIUM PHENYLBUTYRATE
     Indication: ORNITHINE TRANSCARBAMOYLASE DEFICIENCY
     Dosage: 6G TID
     Dates: start: 20200320
  9. ESOMEPRAZOLE. [Concomitant]
     Active Substance: ESOMEPRAZOLE MAGNESIUM
  10. XIFAXAN [Concomitant]
     Active Substance: RIFAXIMIN
  11. CEPHALEXIN. [Concomitant]
     Active Substance: CEPHALEXIN
  12. WARFARIN [Concomitant]
     Active Substance: WARFARIN

REACTIONS (1)
  - Amino acid level increased [Unknown]
